FAERS Safety Report 4907557-2 (Version None)
Quarter: 2006Q1

REPORT INFORMATION
  Report Type: 
  Country: None (occurrence: None)
  Receive Date: 20060210
  Receipt Date: 20051020
  Transmission Date: 20060701
  Serious: Yes (Hospitalization, Other)
  Sender: FDA-Public Use
  Company Number: US-MERCK-0510USA08443

PATIENT
  Age: 57 Year
  Sex: Male

DRUGS (11)
  1. VIOXX [Suspect]
     Route: 048
     Dates: start: 20030225, end: 20031228
  2. TOPROL-XL [Concomitant]
     Route: 065
  3. HYDROCHLOROTHIAZIDE [Concomitant]
     Route: 065
  4. ZESTRIL [Concomitant]
     Route: 065
  5. AVAPRO [Concomitant]
     Route: 065
  6. LIPITOR [Concomitant]
     Route: 065
  7. PREVACID [Concomitant]
     Route: 065
  8. DARVOCET-N 50 [Concomitant]
     Route: 065
  9. ELAVIL [Concomitant]
     Route: 065
  10. XANAX [Concomitant]
     Route: 065
  11. CLARITIN [Concomitant]
     Route: 065

REACTIONS (7)
  - ANGINA PECTORIS [None]
  - ARTERIOSCLEROSIS [None]
  - CARDIOMYOPATHY [None]
  - COLONIC POLYP [None]
  - HAEMATOCHEZIA [None]
  - LACUNAR INFARCTION [None]
  - ROTATOR CUFF SYNDROME [None]
